FAERS Safety Report 8343558 (Version 4)
Quarter: 2012Q4

REPORT INFORMATION
  Report Type: Report from Study
  Country: BR (occurrence: BR)
  Receive Date: 20120119
  Receipt Date: 20120913
  Transmission Date: 20130627
  Serious: Yes (Death, Hospitalization, Other)
  Sender: FDA-Public Use
  Company Number: BR-ROCHE-1023865

PATIENT
  Sex: Female
  Weight: 48 kg

DRUGS (11)
  1. MABTHERA [Suspect]
     Indication: RHEUMATOID ARTHRITIS
     Route: 042
     Dates: start: 20110212, end: 20110713
  2. MABTHERA [Suspect]
     Route: 065
     Dates: end: 20110728
  3. MABTHERA [Suspect]
     Route: 065
     Dates: start: 20110224, end: 20120301
  4. CHLOROQUINE [Concomitant]
     Route: 065
  5. FUROSEMIDE [Concomitant]
  6. FORASEQ [Concomitant]
  7. FLUOXETIN [Concomitant]
     Route: 065
  8. BROMAZEPAM [Concomitant]
     Route: 065
  9. PANTOGAR (AUSTRIA) [Concomitant]
  10. TORAGESIC [Concomitant]
  11. PROPANOLOLI HYDROCHLORIDUM [Concomitant]
     Route: 065

REACTIONS (6)
  - Systemic lupus erythematosus [Fatal]
  - Swelling [Recovering/Resolving]
  - Urinary tract infection [Recovering/Resolving]
  - Haematemesis [Not Recovered/Not Resolved]
  - Systemic lupus erythematosus [Not Recovered/Not Resolved]
  - Von Willebrand^s disease [Not Recovered/Not Resolved]
